FAERS Safety Report 18990531 (Version 4)
Quarter: 2021Q2

REPORT INFORMATION
  Report Type: Report from Study
  Country: BR (occurrence: BR)
  Receive Date: 20210310
  Receipt Date: 20210622
  Transmission Date: 20210717
  Serious: Yes (Hospitalization, Other)
  Sender: FDA-Public Use
  Company Number: NVSC2021BR035676

PATIENT
  Age: 40 Year
  Sex: Female

DRUGS (8)
  1. KISQALI [Suspect]
     Active Substance: RIBOCICLIB
     Indication: BREAST CANCER
     Dosage: 200 MG (1 DAILY, IN FASTING)
     Route: 048
     Dates: start: 20210203, end: 20210209
  2. FASLODEX [Concomitant]
     Active Substance: FULVESTRANT
     Indication: PRODUCT USED FOR UNKNOWN INDICATION
     Dosage: (2 INJECTIONS) ( ON WEDNESDAYS)
     Route: 030
  3. NOVALGINA [Concomitant]
     Active Substance: METAMIZOLE SODIUM
     Indication: PRODUCT USED FOR UNKNOWN INDICATION
     Dosage: UNK
     Route: 065
  4. RESTIVA [Concomitant]
     Active Substance: BUPRENORPHINE
     Indication: PRODUCT USED FOR UNKNOWN INDICATION
     Dosage: UNK
     Route: 065
  5. KISQALI [Suspect]
     Active Substance: RIBOCICLIB
     Dosage: UNK (3 TIMES A DAY)
     Route: 048
  6. KISQALI [Suspect]
     Active Substance: RIBOCICLIB
     Dosage: UNK
     Route: 065
     Dates: start: 20210122, end: 20210609
  7. ZOMETA [Suspect]
     Active Substance: ZOLEDRONIC ACID
     Indication: PRODUCT USED FOR UNKNOWN INDICATION
     Dosage: UNK
     Route: 065
  8. ZOLADEX [Concomitant]
     Active Substance: GOSERELIN ACETATE
     Indication: PRODUCT USED FOR UNKNOWN INDICATION
     Dosage: UNK
     Route: 065

REACTIONS (24)
  - Metastases to eye [Unknown]
  - Incorrect dose administered [Recovered/Resolved]
  - Breast cancer [Unknown]
  - Anxiety [Unknown]
  - Drug ineffective [Unknown]
  - Depressed mood [Unknown]
  - Pain [Unknown]
  - Gait disturbance [Unknown]
  - Gait inability [Unknown]
  - Metastases to spine [Unknown]
  - Weight increased [Unknown]
  - Metastases to bone [Unknown]
  - Spinal fracture [Unknown]
  - Pain in extremity [Unknown]
  - Back pain [Not Recovered/Not Resolved]
  - Spinal disorder [Unknown]
  - Metastases to pelvis [Unknown]
  - Malignant neoplasm progression [Unknown]
  - Spinal cord neoplasm [Unknown]
  - Second primary malignancy [Unknown]
  - Spinal cord compression [Unknown]
  - Movement disorder [Unknown]
  - Breast enlargement [Unknown]
  - Eye disorder [Unknown]

NARRATIVE: CASE EVENT DATE: 202102
